FAERS Safety Report 5706395-0 (Version None)
Quarter: 2008Q2

REPORT INFORMATION
  Report Type: 
  Country: None (occurrence: None)
  Receive Date: 20080415
  Receipt Date: 20080407
  Transmission Date: 20081010
  Serious: Yes (Death, Other)
  Sender: FDA-Public Use
  Company Number: JP-MERCK-0803USA04458

PATIENT
  Age: 49 Year
  Sex: Male
  Weight: 39 kg

DRUGS (7)
  1. STROMECTOL [Suspect]
     Indication: STRONGYLOIDIASIS
     Route: 048
  2. IVOMEC [Suspect]
     Route: 058
  3. CEFOTAXIME SODIUM [Concomitant]
     Indication: MENINGITIS BACTERIAL
     Route: 051
  4. CEFOTAXIME SODIUM [Concomitant]
     Route: 051
  5. PIPERACILLIN SODIUM AND TAZOBACTAM SODIUM [Concomitant]
     Indication: BACTERIAL INFECTION
     Route: 065
  6. GENTAMICIN SULFATE [Concomitant]
     Indication: MENINGITIS BACTERIAL
     Route: 051
  7. ARBEKACIN [Concomitant]
     Indication: BACTERIAL INFECTION
     Route: 048

REACTIONS (16)
  - ANAEMIA [None]
  - BACTERIAL INFECTION [None]
  - BLOOD CULTURE POSITIVE [None]
  - CNS VENTRICULITIS [None]
  - DIARRHOEA [None]
  - DRUG INEFFECTIVE [None]
  - GASTROINTESTINAL HAEMORRHAGE [None]
  - HYDROCEPHALUS [None]
  - HYPOTENSION [None]
  - JEJUNAL ULCER [None]
  - MELAENA [None]
  - MENINGITIS BACTERIAL [None]
  - PNEUMONIA ASPIRATION [None]
  - PYREXIA [None]
  - SHOCK [None]
  - WRONG TECHNIQUE IN DRUG USAGE PROCESS [None]
